FAERS Safety Report 23420218 (Version 1)
Quarter: 2024Q1

REPORT INFORMATION
  Report Type: Spontaneous
  Country: US (occurrence: US)
  Receive Date: 20240119
  Receipt Date: 20240119
  Transmission Date: 20240410
  Serious: No
  Sender: FDA-Public Use
  Company Number: US-UNITED THERAPEUTICS-UNT-2024-001159

PATIENT

DRUGS (1)
  1. ORENITRAM [Suspect]
     Active Substance: TREPROSTINIL
     Indication: Product used for unknown indication
     Dosage: UNK UNK, Q8H
     Route: 048
     Dates: start: 2017

REACTIONS (3)
  - Secretion discharge [Unknown]
  - Dyspepsia [Unknown]
  - Abdominal discomfort [Unknown]
